FAERS Safety Report 9950891 (Version 2)
Quarter: 2014Q1

REPORT INFORMATION
  Report Type: Report from Study
  Country: US (occurrence: US)
  Receive Date: 20140304
  Receipt Date: 20140304
  Transmission Date: 20141002
  Serious: Yes (Other)
  Sender: FDA-Public Use
  Company Number: US-ABBVIE-12P-163-0973453-00

PATIENT
  Age: 66 Year
  Sex: Male

DRUGS (20)
  1. HUMIRA 40 MG/0.8 ML PEN [Suspect]
     Indication: CROHN^S DISEASE
     Dates: start: 20120503
  2. AMLODIPINE [Concomitant]
     Indication: BLOOD PRESSURE
  3. CHLORTHALIDONE [Concomitant]
     Indication: BLOOD PRESSURE
     Dosage: MON, WED AND FRIDAY
  4. BYSTOLIC [Concomitant]
     Indication: BLOOD PRESSURE
  5. PENTASA [Concomitant]
     Indication: CROHN^S DISEASE
  6. PURINETHOL [Concomitant]
     Indication: CROHN^S DISEASE
  7. LIBRAX [Concomitant]
     Indication: CROHN^S DISEASE
  8. AMITRIPTYLINE [Concomitant]
     Indication: CROHN^S DISEASE
  9. PRILOSEC [Concomitant]
     Indication: CROHN^S DISEASE
  10. HYDRALAZINE [Concomitant]
     Indication: BLOOD PRESSURE
  11. MISOPROSTOL [Concomitant]
     Indication: PROPHYLAXIS
  12. MISOPROSTOL [Concomitant]
     Indication: RENAL DISORDER
  13. TERAZOSIN [Concomitant]
     Indication: RENAL DISORDER
  14. POTASSIUM [Concomitant]
     Indication: CARDIAC DISORDER
  15. BUDESONIDE [Concomitant]
     Indication: CROHN^S DISEASE
  16. SINGULAR [Concomitant]
     Indication: SINUS DISORDER
  17. MULTIVITAMIN [Concomitant]
     Indication: PRODUCT USED FOR UNKNOWN INDICATION
  18. VITAMIN B 12 [Concomitant]
     Indication: PRODUCT USED FOR UNKNOWN INDICATION
  19. ACIDOPHILUS [Concomitant]
     Indication: PROBIOTIC THERAPY
  20. VITAMIN D [Concomitant]
     Indication: PRODUCT USED FOR UNKNOWN INDICATION
     Dosage: WEEKLY

REACTIONS (4)
  - Malignant melanoma [Not Recovered/Not Resolved]
  - Dizziness [Not Recovered/Not Resolved]
  - Liquid product physical issue [Unknown]
  - Pulmonary mass [Unknown]
